FAERS Safety Report 7726393-5 (Version None)
Quarter: 2011Q3

REPORT INFORMATION
  Report Type: 
  Country: None (occurrence: None)
  Receive Date: 20110831
  Receipt Date: 20110822
  Transmission Date: 20111222
  Serious: Yes (Death)
  Sender: FDA-Public Use
  Company Number: VAL_00605_2011

PATIENT
  Sex: Female

DRUGS (11)
  1. CALCITRIOL [Suspect]
     Indication: NEPHROGENIC ANAEMIA
     Dosage: 0.25 UG
     Dates: start: 20101102
  2. BISOPROLOL FUMARATE [Concomitant]
  3. CINACALCET [Concomitant]
  4. NOVOMIX [Concomitant]
  5. METOPROLOL SUCCINATE [Concomitant]
  6. DALTEPARIN-DALTEPARINE SODIUM [Concomitant]
  7. OMEPRAZOLE [Concomitant]
  8. FERROUS GLUCONATE [Concomitant]
  9. BEMIPARIN SODIUM [Concomitant]
  10. METHOXY POLYETHYLENE GLUCOL-EPOETIN BETA (METHOXY POLYETHYLENE GLUCOK- [Suspect]
     Indication: NEPHROGENIC ANAEMIA
     Dosage: 60 UG, 1 X PER 1 MONTH, INTRAVENOUS
     Route: 042
     Dates: start: 20090331
  11. FUROSEMIDE [Concomitant]

REACTIONS (1)
  - URINARY TRACT INFECTION [None]
